FAERS Safety Report 8275241 (Version 3)
Quarter: 2013Q3

REPORT INFORMATION
  Report Type: Spontaneous
  Country: JP (occurrence: JP)
  Receive Date: 20111205
  Receipt Date: 20130701
  Transmission Date: 20140515
  Serious: Yes (Other)
  Sender: FDA-Public Use
  Company Number: JP-GLAXOSMITHKLINE-B0766545A

PATIENT
  Age: 81 Year
  Sex: Male
  Weight: 56 kg

DRUGS (10)
  1. VALTREX [Suspect]
     Indication: HERPES SIMPLEX
     Dosage: 500MG TWICE PER DAY
     Route: 048
     Dates: start: 20111125, end: 20111128
  2. CALTAN [Concomitant]
     Indication: HYPERPHOSPHATAEMIA
     Dosage: 1000MG THREE TIMES PER DAY
     Route: 048
     Dates: start: 20060313
  3. BUFFERIN [Concomitant]
     Indication: ATRIAL FLUTTER
     Dosage: 81MG PER DAY
     Route: 048
     Dates: start: 20060313
  4. WARFARIN [Concomitant]
     Indication: ATRIAL FLUTTER
     Dosage: 1.5MG PER DAY
     Route: 048
     Dates: start: 20060808
  5. ARTIST [Concomitant]
     Indication: HYPERTENSION
     Dosage: 2.5MG PER DAY
     Route: 048
     Dates: start: 20110401
  6. RADEN [Concomitant]
     Indication: GASTRITIS
     Dosage: 75MG PER DAY
     Route: 048
     Dates: start: 20101029
  7. UNKNOWN [Concomitant]
     Indication: HAEMODIALYSIS
     Route: 065
  8. D-ALFA [Concomitant]
     Route: 048
  9. DEPAS [Concomitant]
     Route: 048
  10. EPOGIN [Concomitant]
     Route: 065

REACTIONS (5)
  - Cerebral atrophy [Unknown]
  - Neurotoxicity [Unknown]
  - Dysarthria [Recovering/Resolving]
  - Dizziness [Recovering/Resolving]
  - Extra dose administered [Unknown]
